FAERS Safety Report 19104779 (Version 1)
Quarter: 2021Q2

REPORT INFORMATION
  Report Type: Spontaneous
  Country: US (occurrence: US)
  Receive Date: 20210407
  Receipt Date: 20210407
  Transmission Date: 20210717
  Serious: Yes (Other)
  Sender: FDA-Public Use
  Company Number: NVSC2020US349322

PATIENT
  Age: 28 Year
  Sex: Male
  Weight: 93.8 kg

DRUGS (1)
  1. TISAGENLECLEUCEL. [Suspect]
     Active Substance: TISAGENLECLEUCEL
     Indication: ACUTE LYMPHOCYTIC LEUKAEMIA
     Dosage: UNK (2.4 X 10^8 CELLS)
     Route: 065
     Dates: start: 201902

REACTIONS (1)
  - Acute lymphocytic leukaemia recurrent [Unknown]
